FAERS Safety Report 7778183-5 (Version None)
Quarter: 2011Q3

REPORT INFORMATION
  Report Type: 
  Country: None (occurrence: None)
  Receive Date: 20110922
  Receipt Date: 20110908
  Transmission Date: 20111222
  Serious: Yes (Disabling)
  Sender: FDA-Public Use
  Company Number: GR-1185489

PATIENT
  Age: 6 Year
  Sex: Male

DRUGS (9)
  1. CLARITHROMYCIN [Concomitant]
  2. GARAMAT (GARAMAT) (SCHERING-PLOUGH) [Suspect]
     Indication: EAR INFECTION
     Dosage: NASAL
     Route: 045
  3. CLARIPEN [Concomitant]
  4. TOBRADEX [Suspect]
     Indication: LARYNGITIS
     Dosage: NASAL
     Route: 045
  5. TOBRADEX [Suspect]
     Indication: EAR INFECTION
     Dosage: NASAL
     Route: 045
  6. TOBREX [Suspect]
     Indication: EAR INFECTION
     Dosage: NASAL
     Route: 045
  7. GARAMYCIN (GARAMYCIN) (ESSEX CHEMIE AG) [Suspect]
     Indication: EAR INFECTION
     Dosage: NASAL
     Route: 045
  8. ALBUTEROL [Concomitant]
  9. HOMEOPATHIC PREPARATION [Concomitant]

REACTIONS (3)
  - DEAFNESS [None]
  - DRUG ADMINISTERED AT INAPPROPRIATE SITE [None]
  - HYPOACUSIS [None]
